FAERS Safety Report 25775144 (Version 6)
Quarter: 2025Q4

REPORT INFORMATION
  Report Type: Report from Study
  Country: JP (occurrence: JP)
  Receive Date: 20250909
  Receipt Date: 20251216
  Transmission Date: 20260118
  Serious: Yes (Hospitalization)
  Sender: TAKEDA
  Company Number: JP-TAKEDA-2024TJP007966

PATIENT
  Age: 53 Year
  Sex: Female

DRUGS (4)
  1. ICATIBANT [Suspect]
     Active Substance: ICATIBANT ACETATE
     Indication: Hereditary angioedema
     Dosage: 30 MILLIGRAM
  2. ICATIBANT [Suspect]
     Active Substance: ICATIBANT ACETATE
     Dosage: 30 MILLIGRAM
     Dates: start: 20240902, end: 20240902
  3. ICATIBANT [Suspect]
     Active Substance: ICATIBANT ACETATE
     Dosage: 30 MILLIGRAM
  4. TRANSAMIN [Concomitant]
     Active Substance: TRANEXAMIC ACID
     Dosage: UNK

REACTIONS (19)
  - Vomiting [Unknown]
  - Physical deconditioning [Unknown]
  - Headache [Recovered/Resolved]
  - Ocular discomfort [Unknown]
  - Visual impairment [Unknown]
  - Anxiety [Unknown]
  - Pain [Recovered/Resolved]
  - Emotional distress [Unknown]
  - Stress [Unknown]
  - Fatigue [Unknown]
  - Physical deconditioning [Unknown]
  - Adjustment disorder [Unknown]
  - Emotional distress [Unknown]
  - Abdominal pain [Unknown]
  - Hereditary angioedema [Unknown]
  - Headache [Unknown]
  - Sinusitis [Recovered/Resolved]
  - Therapeutic product effect incomplete [Unknown]
  - Wrong technique in device usage process [Unknown]

NARRATIVE: CASE EVENT DATE: 20240909
